FAERS Safety Report 5072602-3 (Version None)
Quarter: 2006Q3

REPORT INFORMATION
  Report Type: 
  Country: None (occurrence: None)
  Receive Date: 20060807
  Receipt Date: 20050928
  Transmission Date: 20061208
  Serious: Yes (Hospitalization, Disabling)
  Sender: FDA-Public Use
  Company Number: US-ROCHE-419592

PATIENT
  Age: 33 Year
  Sex: Female
  Weight: 61.2 kg

DRUGS (2)
  1. ACCUTANE [Suspect]
     Route: 048
     Dates: start: 19970922, end: 19971115
  2. ORTHO TRI-CYCLEN [Concomitant]
     Route: 048

REACTIONS (9)
  - ASTHMA [None]
  - COLITIS [None]
  - COLITIS ULCERATIVE [None]
  - DIVERTICULITIS [None]
  - GASTROINTESTINAL DISORDER [None]
  - INFLAMMATORY BOWEL DISEASE [None]
  - INTESTINAL HAEMORRHAGE [None]
  - POLYP [None]
  - RESPIRATORY DISORDER [None]
